FAERS Safety Report 13698484 (Version 1)
Quarter: 2017Q2

REPORT INFORMATION
  Report Type: Spontaneous
  Country: JP (occurrence: JP)
  Receive Date: 20170628
  Receipt Date: 20170628
  Transmission Date: 20170830
  Serious: Yes (Death, Hospitalization, Other)
  Sender: FDA-Public Use
  Company Number: JP-GILEAD-2017-0280010

PATIENT
  Age: 13 Year
  Sex: Male
  Weight: 31.4 kg

DRUGS (19)
  1. ENALAPRIL [Concomitant]
     Active Substance: ENALAPRIL
     Indication: CAVOPULMONARY ANASTOMOSIS
     Dosage: 0.2 MG/KG, QD
  2. FUROSEMIDE. [Concomitant]
     Active Substance: FUROSEMIDE
     Indication: PROTEIN-LOSING GASTROENTEROPATHY
  3. LEVETIRACETAM. [Concomitant]
     Active Substance: LEVETIRACETAM
     Indication: CONVULSION PROPHYLAXIS
     Dosage: 25 MG/KG, QD
  4. AMBRISENTAN [Suspect]
     Active Substance: AMBRISENTAN
     Indication: PROTEIN-LOSING GASTROENTEROPATHY
  5. TADALAFIL [Concomitant]
     Active Substance: TADALAFIL
     Indication: CAVOPULMONARY ANASTOMOSIS
     Dosage: 1 MG/KG, QD
  6. WARFARIN                           /00014803/ [Concomitant]
     Active Substance: WARFARIN
     Indication: CAVOPULMONARY ANASTOMOSIS
     Dosage: 0.05 MG/KG, QD
  7. WARFARIN                           /00014803/ [Concomitant]
     Active Substance: WARFARIN
     Indication: PROTEIN-LOSING GASTROENTEROPATHY
  8. FAMOTIDINE. [Concomitant]
     Active Substance: FAMOTIDINE
     Dosage: UNK
  9. PREDNISOLONE. [Concomitant]
     Active Substance: PREDNISOLONE
     Indication: CAVOPULMONARY ANASTOMOSIS
     Dosage: 0.2 MG/KG, QD
  10. TADALAFIL [Concomitant]
     Active Substance: TADALAFIL
     Indication: PROTEIN-LOSING GASTROENTEROPATHY
  11. TOLVAPTAN [Concomitant]
     Active Substance: TOLVAPTAN
     Indication: CAVOPULMONARY ANASTOMOSIS
     Dosage: 0.2 MG/KG, QD
  12. TOLVAPTAN [Concomitant]
     Active Substance: TOLVAPTAN
     Indication: PROTEIN-LOSING GASTROENTEROPATHY
  13. FUROSEMIDE. [Concomitant]
     Active Substance: FUROSEMIDE
     Indication: CAVOPULMONARY ANASTOMOSIS
     Dosage: 1.3 MG/KG, QD
  14. SPIRONOLACTONE. [Concomitant]
     Active Substance: SPIRONOLACTONE
     Indication: PROTEIN-LOSING GASTROENTEROPATHY
  15. OMEPRAZOLE. [Concomitant]
     Active Substance: OMEPRAZOLE
     Dosage: UNK
  16. AMBRISENTAN [Suspect]
     Active Substance: AMBRISENTAN
     Indication: CAVOPULMONARY ANASTOMOSIS
     Dosage: 0.1 MG/KG, QD
     Route: 048
  17. PREDNISOLONE. [Concomitant]
     Active Substance: PREDNISOLONE
     Indication: PROTEIN-LOSING GASTROENTEROPATHY
  18. ENALAPRIL [Concomitant]
     Active Substance: ENALAPRIL
     Indication: PROTEIN-LOSING GASTROENTEROPATHY
  19. SPIRONOLACTONE. [Concomitant]
     Active Substance: SPIRONOLACTONE
     Indication: CAVOPULMONARY ANASTOMOSIS
     Dosage: 5 MG/KG, QD

REACTIONS (26)
  - Anaemia [Unknown]
  - Circulatory collapse [Fatal]
  - Liver disorder [Unknown]
  - Off label use [Not Recovered/Not Resolved]
  - Anastomotic stenosis [Unknown]
  - Left ventricle outflow tract obstruction [Unknown]
  - Central venous pressure increased [Unknown]
  - Cardiac failure [Unknown]
  - Melaena [Recovering/Resolving]
  - Respiratory disorder [Unknown]
  - Ammonia increased [Unknown]
  - Cerebral haemorrhage [Unknown]
  - Hyperbilirubinaemia [Unknown]
  - Cytomegalovirus test positive [Unknown]
  - Ischaemic hepatitis [Fatal]
  - Disorientation [Unknown]
  - Mitral valve incompetence [Unknown]
  - Aortic valve incompetence [Unknown]
  - Seizure [Unknown]
  - Blood pressure decreased [Recovered/Resolved]
  - Hypoproteinaemia [Unknown]
  - Gastric mucosal lesion [Unknown]
  - Protein-losing gastroenteropathy [Recovering/Resolving]
  - Pulmonary congestion [Unknown]
  - Hepatic function abnormal [Unknown]
  - Generalised oedema [Unknown]
